FAERS Safety Report 4340474-8 (Version None)
Quarter: 2004Q2

REPORT INFORMATION
  Report Type: 
  Country: None (occurrence: None)
  Receive Date: 20040414
  Receipt Date: 20040405
  Transmission Date: 20050107
  Serious: Yes (Hospitalization)
  Sender: FDA-Public Use
  Company Number: 04P-056-0256117-00

PATIENT
  Age: 53 Year
  Sex: Male
  Weight: 84 kg

DRUGS (7)
  1. NORVIR [Suspect]
     Indication: HIV INFECTION
     Dosage: 100 MG, 2 IN 1 D, PER ORAL
     Route: 048
  2. INDINAVIR [Suspect]
     Indication: HIV INFECTION
     Dosage: PER ORAL
     Route: 048
  3. LAMIVUDINE [Suspect]
     Indication: HIV INFECTION
     Dosage: 300 MG, 1 IN 1 D, PER ORAL
     Route: 048
  4. ABACAVIR [Suspect]
     Indication: HIV INFECTION
     Dosage: 300 MG, 1 IN 1 D, PER ORAL
     Route: 048
  5. TENOFOVIR [Suspect]
     Indication: HIV INFECTION
     Dosage: 245 MG, 1 IN 1 D, PER ORAL
     Route: 048
  6. PEGINTERFERON [Suspect]
     Indication: HEPATITIS
     Dosage: SUBCUTANEOUS
     Route: 058
     Dates: start: 20030401
  7. RIBAVIRIN [Concomitant]

REACTIONS (4)
  - HEPATITIS [None]
  - OSTEOARTHRITIS [None]
  - TENDONITIS [None]
  - TENOSYNOVITIS [None]
